FAERS Safety Report 7794423-0 (Version None)
Quarter: 2011Q4

REPORT INFORMATION
  Report Type: 
  Country: None (occurrence: None)
  Receive Date: 20111004
  Receipt Date: 20111004
  Transmission Date: 20120403
  Serious: No
  Sender: FDA-Public Use
  Company Number: None

PATIENT
  Age: 46 Year
  Sex: Female
  Weight: 90.264 kg

DRUGS (1)
  1. NOVOLOG [Suspect]
     Indication: DIABETES MELLITUS INADEQUATE CONTROL
     Dosage: ATY.20 USED IN PUMP
     Route: 050
     Dates: start: 20040828, end: 20110925

REACTIONS (1)
  - BLOOD GLUCOSE INCREASED [None]
